FAERS Safety Report 5621686-X (Version None)
Quarter: 2008Q1

REPORT INFORMATION
  Report Type: 
  Country: None (occurrence: None)
  Receive Date: 20080211
  Receipt Date: 20080201
  Transmission Date: 20080703
  Serious: Yes (Other)
  Sender: FDA-Public Use
  Company Number: PHEH2008US01480

PATIENT
  Age: 69 Year
  Sex: Male

DRUGS (4)
  1. EXELON [Suspect]
     Indication: PARKINSON'S DISEASE
     Route: 062
     Dates: start: 20071220, end: 20080116
  2. NAMENDA [Suspect]
     Indication: DEMENTIA ALZHEIMER'S TYPE
     Dosage: 15 MBQ, QD
     Route: 048
     Dates: start: 20071220
  3. NAMENDA [Suspect]
     Dosage: 10 MG, BID
     Dates: start: 20080122
  4. ZOLOFT [Concomitant]

REACTIONS (2)
  - BLOOD PRESSURE INCREASED [None]
  - HALLUCINATION [None]
